FAERS Safety Report 10726124 (Version 1)
Quarter: 2015Q1

REPORT INFORMATION
  Report Type: Spontaneous
  Country: DE (occurrence: None)
  Receive Date: 20150116
  Receipt Date: 20150116
  Transmission Date: 20150721
  Serious: Yes (Hospitalization, Other)
  Sender: FDA-Public Use
  Company Number: DE-2015VAL000038

PATIENT
  Age: 1 Day
  Sex: Male
  Weight: 2.9 kg

DRUGS (5)
  1. FOLIC ACID (FOLIC ACID) [Concomitant]
     Active Substance: FOLIC ACID
  2. L-THYROXINE (LEVOTHYROXINE) [Concomitant]
     Active Substance: LEVOTHYROXINE
  3. MISOPROSTOL. [Concomitant]
     Active Substance: MISOPROSTOL
  4. FRAGMIN [Concomitant]
     Active Substance: DALTEPARIN SODIUM
  5. METOPROLOL TARTRATE. [Suspect]
     Active Substance: METOPROLOL TARTRATE
     Indication: MATERNAL EXPOSURE TIMING UNSPECIFIED
     Dosage: 25 MG, QD, UNTIL GW 32, TRANSPLACENTAL
     Route: 064

REACTIONS (9)
  - Hypoglycaemia neonatal [None]
  - Foetal exposure during pregnancy [None]
  - Maternal drugs affecting foetus [None]
  - Hypotension [None]
  - Premature baby [None]
  - Macrocephaly [None]
  - Foetal heart rate deceleration abnormality [None]
  - Temperature regulation disorder [None]
  - Caesarean section [None]

NARRATIVE: CASE EVENT DATE: 2013
